FAERS Safety Report 6256350-X (Version None)
Quarter: 2009Q3

REPORT INFORMATION
  Report Type: 
  Country: None (occurrence: None)
  Receive Date: 20090706
  Receipt Date: 20090626
  Transmission Date: 20100115
  Serious: Yes (Other)
  Sender: FDA-Public Use
  Company Number: GB-ROCHE-641503

PATIENT
  Sex: Female

DRUGS (1)
  1. BONIVA [Suspect]
     Indication: OSTEOPOROSIS
     Dosage: FREQUENCU REPORTED AS MONTHLY.
     Route: 048
     Dates: start: 20070805

REACTIONS (2)
  - TOOTH EXTRACTION [None]
  - TOOTHACHE [None]
